FAERS Safety Report 6533874-9 (Version None)
Quarter: 2010Q1

REPORT INFORMATION
  Report Type: 
  Country: None (occurrence: None)
  Receive Date: 20100111
  Receipt Date: 20091029
  Transmission Date: 20100710
  Serious: No
  Sender: FDA-Public Use
  Company Number: US-ABBOTT-09P-163-0605812-00

PATIENT
  Sex: Female

DRUGS (1)
  1. VICODIN [Suspect]
     Indication: APPARENT DEATH
     Route: 065

REACTIONS (8)
  - CONSTIPATION [None]
  - DRUG DEPENDENCE [None]
  - HYPOPHAGIA [None]
  - INCORRECT ROUTE OF DRUG ADMINISTRATION [None]
  - LOGORRHOEA [None]
  - PRURITUS [None]
  - VISUAL IMPAIRMENT [None]
  - WRONG TECHNIQUE IN DRUG USAGE PROCESS [None]
